FAERS Safety Report 5964387-0 (Version None)
Quarter: 2008Q4

REPORT INFORMATION
  Report Type: 
  Country: None (occurrence: None)
  Receive Date: 20081124
  Receipt Date: 20081113
  Transmission Date: 20090506
  Serious: Yes (Other)
  Sender: FDA-Public Use
  Company Number: US-PFIZER INC-2008096596

PATIENT
  Sex: Male
  Weight: 93 kg

DRUGS (8)
  1. XANAX [Suspect]
     Indication: ANXIETY
     Dates: start: 20080601
  2. ETHANOL [Interacting]
  3. LISINOPRIL [Concomitant]
  4. LEVOXYL [Concomitant]
  5. LIPITOR [Concomitant]
  6. HUMALOG [Concomitant]
  7. LANTUS [Concomitant]
  8. LEXAPRO [Concomitant]

REACTIONS (6)
  - BLOOD GLUCOSE DECREASED [None]
  - CARDIAC FIBRILLATION [None]
  - DRUG INTERACTION [None]
  - NERVOUSNESS [None]
  - PLATELET COUNT INCREASED [None]
  - TACHYCARDIA [None]
